FAERS Safety Report 7570227-9 (Version None)
Quarter: 2011Q2

REPORT INFORMATION
  Report Type: 
  Country: None (occurrence: None)
  Receive Date: 20110621
  Receipt Date: 20110603
  Transmission Date: 20111010
  Serious: Yes (Other)
  Sender: FDA-Public Use
  Company Number: USA/USA/11/0018740

PATIENT
  Sex: Female

DRUGS (1)
  1. FEXOFENADINE HCL [Suspect]
     Indication: HYPERSENSITIVITY
     Dosage: 180 MG, AS NEEDED
     Dates: start: 20110101, end: 20110501

REACTIONS (1)
  - ARTHRITIS [None]
